FAERS Safety Report 8462221-0 (Version None)
Quarter: 2012Q2

REPORT INFORMATION
  Report Type: 
  Country: None (occurrence: None)
  Receive Date: 20120625
  Receipt Date: 20120620
  Transmission Date: 20120825
  Serious: Yes (Hospitalization, Other)
  Sender: FDA-Public Use
  Company Number: PHHY2011CA55236

PATIENT
  Sex: Female

DRUGS (2)
  1. ANTIBIOTICS [Concomitant]
  2. SANDOSTATIN LAR [Suspect]
     Indication: CARCINOID TUMOUR OF THE SMALL BOWEL
     Dosage: 50 MG, TIW
     Route: 030
     Dates: start: 20090505

REACTIONS (25)
  - ERYTHEMA [None]
  - ABDOMINAL PAIN LOWER [None]
  - INJECTION SITE PAIN [None]
  - DRY SKIN [None]
  - OEDEMA PERIPHERAL [None]
  - BLOOD PRESSURE SYSTOLIC INCREASED [None]
  - FALL [None]
  - EPISTAXIS [None]
  - ABDOMINAL PAIN [None]
  - VOMITING [None]
  - INJECTION SITE SWELLING [None]
  - CONTUSION [None]
  - ARTHROPATHY [None]
  - SKIN TIGHTNESS [None]
  - DIARRHOEA [None]
  - ARTHRITIS [None]
  - INTESTINAL OBSTRUCTION [None]
  - SKIN WARM [None]
  - BLOOD PRESSURE DIASTOLIC DECREASED [None]
  - OSTEOARTHRITIS [None]
  - PAIN IN EXTREMITY [None]
  - ARTHRALGIA [None]
  - BLOOD TEST ABNORMAL [None]
  - PAIN [None]
  - FLATULENCE [None]
